FAERS Safety Report 6465534-7 (Version None)
Quarter: 2009Q4

REPORT INFORMATION
  Report Type: 
  Country: None (occurrence: None)
  Receive Date: 20091201
  Receipt Date: 20081117
  Transmission Date: 20100525
  Serious: No
  Sender: FDA-Public Use
  Company Number: US-AMGEN-KDL313109

PATIENT
  Sex: Male

DRUGS (1)
  1. ENBREL [Suspect]
     Indication: RHEUMATOID ARTHRITIS
     Route: 058
     Dates: start: 20081002

REACTIONS (5)
  - ACARODERMATITIS [None]
  - DRUG HYPERSENSITIVITY [None]
  - RASH PAPULAR [None]
  - RASH PRURITIC [None]
  - VIRAL INFECTION [None]
